FAERS Safety Report 9935609 (Version 1)
Quarter: 2014Q1

REPORT INFORMATION
  Report Type: Spontaneous
  Country: IT (occurrence: IT)
  Receive Date: 20140228
  Receipt Date: 20140228
  Transmission Date: 20141002
  Serious: Yes (Other)
  Sender: FDA-Public Use
  Company Number: PHHY2014IT023596

PATIENT
  Age: 36 Year
  Sex: Male

DRUGS (4)
  1. RIBAVIRIN [Suspect]
     Dosage: 1000 MG, PER DAY
  2. ESCITALOPRAM [Suspect]
     Dosage: 10 MG, PER DAY
  3. TELAPREVIR [Suspect]
     Dosage: 750 MG, TID
  4. PEGINTERFERON ALFA-2A [Suspect]
     Dosage: 180 UG, WEEKLY

REACTIONS (2)
  - Convulsion [Recovered/Resolved]
  - Drug effect incomplete [Unknown]
